FAERS Safety Report 25318269 (Version 1)
Quarter: 2025Q2

REPORT INFORMATION
  Report Type: Report from Study
  Country: CA (occurrence: CA)
  Receive Date: 20250515
  Receipt Date: 20250515
  Transmission Date: 20250716
  Serious: Yes (Other)
  Sender: SAMSUNG BIOEPIS
  Company Number: CA-SAMSUNG BIOEPIS-SB-2025-16938

PATIENT
  Age: 50 Year

DRUGS (1)
  1. RENFLEXIS [Suspect]
     Active Substance: INFLIXIMAB-ABDA
     Indication: Colitis microscopic
     Route: 042
     Dates: start: 20241127, end: 20250304

REACTIONS (2)
  - Hepatitis [Unknown]
  - Off label use [Unknown]
